FAERS Safety Report 4855920-0 (Version None)
Quarter: 2005Q4

REPORT INFORMATION
  Report Type: 
  Country: None (occurrence: None)
  Receive Date: 20051216
  Receipt Date: 20051124
  Transmission Date: 20060501
  Serious: Yes (Other)
  Sender: FDA-Public Use
  Company Number: SE-GLAXOSMITHKLINE-B0402452A

PATIENT
  Age: 68 Year
  Sex: Male

DRUGS (7)
  1. AVANDIA [Suspect]
     Indication: DIABETES MELLITUS
     Dosage: 4MG PER DAY
     Route: 048
     Dates: start: 20041126
  2. STILNOCT [Concomitant]
  3. MINDIAB [Concomitant]
  4. CARDIZEM [Concomitant]
  5. GLUCOPHAGE [Concomitant]
  6. TRIOBE [Concomitant]
  7. ISOSORBIDE MONONITRATE [Concomitant]

REACTIONS (3)
  - ANGINA PECTORIS [None]
  - HEART RATE INCREASED [None]
  - PALPITATIONS [None]
